FAERS Safety Report 8946807 (Version 1)
Quarter: 2012Q4

REPORT INFORMATION
  Report Type: 
  Country: US (occurrence: US)
  Receive Date: 20121204
  Receipt Date: 20121204
  Transmission Date: 20130627
  Serious: No
  Sender: FDA-Public Use
  Company Number: US-AMGEN-USASP2012072408

PATIENT
  Age: 58 Year
  Sex: Female
  Weight: 43.08 kg

DRUGS (3)
  1. ENBREL [Suspect]
     Indication: RHEUMATOID ARTHRITIS
     Dosage: 50 mg, 2 times/wk
     Route: 058
     Dates: start: 20060310, end: 20120516
  2. HUMIRA [Concomitant]
     Dosage: UNK
  3. LISINOPRIL [Concomitant]
     Indication: HYPERTENSION
     Dosage: 10 mg, bid
     Route: 048
     Dates: start: 20100608

REACTIONS (10)
  - Skin disorder [Not Recovered/Not Resolved]
  - Hypersensitivity [Recovered/Resolved]
  - Rash erythematous [Recovered/Resolved]
  - Feeling hot [Recovered/Resolved]
  - Skin exfoliation [Recovered/Resolved]
  - Sensory loss [Recovered/Resolved]
  - Nervousness [Recovered/Resolved]
  - Bone pain [Not Recovered/Not Resolved]
  - Rash [Not Recovered/Not Resolved]
  - Drug ineffective [Not Recovered/Not Resolved]
